FAERS Safety Report 8851158 (Version 1)
Quarter: 2012Q4

REPORT INFORMATION
  Report Type: 
  Country: US (occurrence: US)
  Receive Date: 20121019
  Receipt Date: 20121019
  Transmission Date: 20130627
  Serious: Yes (Hospitalization)
  Sender: FDA-Public Use
  Company Number: US-BRISTOL-MYERS SQUIBB COMPANY-16798936

PATIENT
  Age: 65 Year
  Sex: Male
  Weight: 82 kg

DRUGS (1)
  1. YERVOY [Suspect]
     Dosage: 27Feb2012, 19Mar2012, 09Apr2012, and 30Apr2012
     Dates: start: 20120227

REACTIONS (1)
  - Hepatitis [Unknown]
